FAERS Safety Report 13904994 (Version 1)
Quarter: 2017Q3

REPORT INFORMATION
  Report Type: Spontaneous
  Country: US (occurrence: None)
  Receive Date: 20170820
  Receipt Date: 20170820
  Transmission Date: 20171127
  Serious: No
  Sender: FDA-Public Use
  Company Number: None

PATIENT
  Age: 13 Year
  Sex: Male

DRUGS (1)
  1. NUTROPIN AQ NUSPIN 20 [Suspect]
     Active Substance: SOMATROPIN
     Dosage: 2MG 6 DAYS/WEEK SQ
     Route: 058
     Dates: start: 20160601

REACTIONS (1)
  - Product storage error [None]

NARRATIVE: CASE EVENT DATE: 20170817
